FAERS Safety Report 10575420 (Version 2)
Quarter: 2015Q2

REPORT INFORMATION
  Report Type: Report from Study
  Country: US (occurrence: US)
  Receive Date: 20141111
  Receipt Date: 20150609
  Transmission Date: 20150821
  Serious: Yes (Other)
  Sender: FDA-Public Use
  Company Number: US-BIOGENIDEC-2014BI113053

PATIENT
  Sex: Female

DRUGS (1)
  1. TECFIDERA [Suspect]
     Active Substance: DIMETHYL FUMARATE
     Indication: RELAPSING-REMITTING MULTIPLE SCLEROSIS
     Dates: start: 20141029

REACTIONS (13)
  - Oropharyngeal pain [Not Recovered/Not Resolved]
  - Vein disorder [Not Recovered/Not Resolved]
  - Nausea [Recovered/Resolved with Sequelae]
  - Multiple sclerosis relapse [Unknown]
  - Stress [Recovered/Resolved with Sequelae]
  - Decreased immune responsiveness [Not Recovered/Not Resolved]
  - Vomiting [Recovered/Resolved with Sequelae]
  - Aphasia [Recovered/Resolved with Sequelae]
  - Seizure [Recovered/Resolved with Sequelae]
  - Anxiety [Recovered/Resolved with Sequelae]
  - Poor quality sleep [Recovered/Resolved with Sequelae]
  - Emotional disorder [Not Recovered/Not Resolved]
  - Emotional distress [Recovered/Resolved with Sequelae]
